FAERS Safety Report 7524586-3 (Version None)
Quarter: 2011Q2

REPORT INFORMATION
  Report Type: 
  Country: None (occurrence: None)
  Receive Date: 20110606
  Receipt Date: 20110526
  Transmission Date: 20111010
  Serious: Yes (Other)
  Sender: FDA-Public Use
  Company Number: US-JNJFOC-20110512734

PATIENT
  Sex: Female
  Weight: 56.7 kg

DRUGS (7)
  1. FENTANYL-100 [Suspect]
     Indication: RHEUMATOID ARTHRITIS
     Route: 062
     Dates: start: 20110427
  2. ACYCLOVIR [Concomitant]
     Indication: HERPES ZOSTER
     Route: 048
     Dates: start: 20080101
  3. FENTANYL-100 [Suspect]
     Route: 062
     Dates: start: 20100801, end: 20110401
  4. PREDNISONE [Concomitant]
     Indication: RHEUMATOID ARTHRITIS
     Route: 048
     Dates: start: 19890101
  5. METHOTREXATE [Suspect]
     Indication: RHEUMATOID ARTHRITIS
     Route: 065
     Dates: start: 20110401, end: 20110401
  6. LISINOPRIL [Concomitant]
     Indication: HYPERTENSION
     Route: 048
     Dates: start: 19910101
  7. FENTANYL-100 [Suspect]
     Indication: RHEUMATOID ARTHRITIS
     Route: 062
     Dates: start: 20110401, end: 20110427

REACTIONS (3)
  - RENAL FAILURE ACUTE [None]
  - RHEUMATOID ARTHRITIS [None]
  - HERPES ZOSTER [None]
